FAERS Safety Report 19185339 (Version 1)
Quarter: 2021Q2

REPORT INFORMATION
  Report Type: Spontaneous
  Country: US (occurrence: US)
  Receive Date: 20210427
  Receipt Date: 20210427
  Transmission Date: 20210717
  Serious: Yes (Disabling)
  Sender: FDA-Public Use
  Company Number: None

PATIENT
  Age: 58 Year
  Sex: Female
  Weight: 68.4 kg

DRUGS (9)
  1. TOPAMAX [Concomitant]
     Active Substance: TOPIRAMATE
  2. ZOPICLONE [Concomitant]
     Active Substance: ZOPICLONE
  3. MAGNESIUM [Concomitant]
     Active Substance: MAGNESIUM
  4. LORAZEPAM. [Concomitant]
     Active Substance: LORAZEPAM
  5. VITAMIN D3 [Concomitant]
     Active Substance: CHOLECALCIFEROL
  6. ALEVE [Concomitant]
     Active Substance: NAPROXEN SODIUM
  7. ZINC. [Concomitant]
     Active Substance: ZINC
  8. BIOTIN [Concomitant]
     Active Substance: BIOTIN
  9. AJOVY [Suspect]
     Active Substance: FREMANEZUMAB-VFRM
     Indication: MIGRAINE
     Dosage: ?          QUANTITY:1 INJECTION(S);OTHER FREQUENCY:ONCE A MONTH;?
     Route: 058
     Dates: start: 20191101, end: 20201210

REACTIONS (4)
  - Arthralgia [None]
  - Constipation [None]
  - Weight increased [None]
  - Myalgia [None]

NARRATIVE: CASE EVENT DATE: 20201101
